FAERS Safety Report 24997964 (Version 1)
Quarter: 2025Q1

REPORT INFORMATION
  Report Type: Spontaneous
  Country: US (occurrence: US)
  Receive Date: 20250222
  Receipt Date: 20250222
  Transmission Date: 20250409
  Serious: No
  Sender: SANOFI AVENTIS
  Company Number: US-SA-2025SA041084

PATIENT
  Age: 49 Year
  Sex: Female

DRUGS (1)
  1. DUPIXENT [Suspect]
     Active Substance: DUPILUMAB
     Indication: Asthma
     Dosage: 300 MG QOW
     Route: 058

REACTIONS (10)
  - Tachycardia [Unknown]
  - Dyspnoea [Unknown]
  - Hypersensitivity [Unknown]
  - Condition aggravated [Unknown]
  - Sinus operation [Unknown]
  - Nasal congestion [Unknown]
  - Asthma [Unknown]
  - Sinusitis [Unknown]
  - Illness [Unknown]
  - Memory impairment [Unknown]

NARRATIVE: CASE EVENT DATE: 20250124
